FAERS Safety Report 4624380-7 (Version None)
Quarter: 2005Q1

REPORT INFORMATION
  Report Type: 
  Country: None (occurrence: None)
  Receive Date: 20050330
  Receipt Date: 20050330
  Transmission Date: 20050727
  Serious: No
  Sender: FDA-Public Use
  Company Number: None

PATIENT
  Sex: Female
  Weight: 90.2658 kg

DRUGS (2)
  1. GABAPENTIN [Suspect]
     Indication: BRONCHITIS CHRONIC
     Dosage: 400 MG PO TID
     Route: 048
  2. GABAPENTIN [Suspect]
     Indication: NEURALGIA
     Dosage: 400 MG PO TID
     Route: 048

REACTIONS (2)
  - DIZZINESS [None]
  - FEELING ABNORMAL [None]
